FAERS Safety Report 8154737 (Version 4)
Quarter: 2013Q1

REPORT INFORMATION
  Report Type: Report from Study
  Country: DE (occurrence: DE)
  Receive Date: 20110923
  Receipt Date: 20130215
  Transmission Date: 20140127
  Serious: Yes (Hospitalization, Other)
  Sender: FDA-Public Use
  Company Number: DE-ABBOTT-11P-062-0854725-00

PATIENT
  Sex: Female
  Weight: 60 kg

DRUGS (4)
  1. HUMIRA [Suspect]
     Indication: CROHN^S DISEASE
     Route: 058
     Dates: start: 20080417, end: 20080417
  2. HUMIRA [Suspect]
     Route: 058
     Dates: start: 20080501, end: 20110904
  3. PREDNISONE [Concomitant]
     Indication: CROHN^S DISEASE
     Dates: start: 2001
  4. MESALAZINE [Concomitant]
     Indication: CROHN^S DISEASE
     Dates: start: 1991

REACTIONS (1)
  - Jejunal perforation [Recovered/Resolved]
